FAERS Safety Report 8097608-1 (Version None)
Quarter: 2012Q1

REPORT INFORMATION
  Report Type: 
  Country: None (occurrence: None)
  Receive Date: 20120128
  Receipt Date: 20110701
  Transmission Date: 20120608
  Serious: No
  Sender: FDA-Public Use
  Company Number: US-ABBOTT-11P-163-0836472-00

PATIENT
  Sex: Female

DRUGS (3)
  1. PREDNISONE TAB [Concomitant]
     Indication: RHEUMATOID ARTHRITIS
     Route: 048
  2. HUMIRA [Suspect]
     Indication: RHEUMATOID ARTHRITIS
     Route: 058
     Dates: start: 20110301
  3. MOBIC [Concomitant]
     Indication: ARTHRALGIA
     Dosage: TWICE DAILY, AS NEEDED
     Route: 048

REACTIONS (2)
  - PRURITUS [None]
  - SKIN EXFOLIATION [None]
